FAERS Safety Report 25466048 (Version 2)
Quarter: 2025Q2

REPORT INFORMATION
  Report Type: Spontaneous
  Country: US (occurrence: US)
  Receive Date: 20250623
  Receipt Date: 20250627
  Transmission Date: 20250717
  Serious: Yes (Hospitalization, Other)
  Sender: BOEHRINGER INGELHEIM
  Company Number: US-Komodo Health-a23aa000008LlnJAAS

PATIENT
  Age: 76 Year
  Sex: Male

DRUGS (2)
  1. OFEV [Suspect]
     Active Substance: NINTEDANIB
     Indication: Idiopathic pulmonary fibrosis
     Dates: start: 202308
  2. OFEV [Suspect]
     Active Substance: NINTEDANIB

REACTIONS (5)
  - Influenza [Recovered/Resolved]
  - Immunodeficiency [Unknown]
  - COVID-19 [Recovered/Resolved]
  - Bacterial infection [Recovered/Resolved]
  - Idiopathic pulmonary fibrosis [Unknown]
